FAERS Safety Report 26191428 (Version 1)
Quarter: 2025Q4

REPORT INFORMATION
  Report Type: Spontaneous
  Country: CN (occurrence: CN)
  Receive Date: 20251223
  Receipt Date: 20251223
  Transmission Date: 20260117
  Serious: Yes (Other)
  Sender: BAYER HEALTHCARE PHARMACEUTICALS INC.
  Company Number: CN-BAYER-2025A167794

PATIENT
  Age: 66 Year
  Sex: Male
  Weight: 66 kg

DRUGS (1)
  1. ULTRAVIST [Suspect]
     Active Substance: IOPROMIDE
     Indication: Angiogram
     Dosage: 50 ML, ONCE
     Route: 042
     Dates: start: 20250825, end: 20250825

REACTIONS (2)
  - Blood creatinine increased [Recovering/Resolving]
  - Oliguria [None]

NARRATIVE: CASE EVENT DATE: 20250826
